FAERS Safety Report 21644262 (Version 1)
Quarter: 2022Q4

REPORT INFORMATION
  Report Type: Spontaneous
  Country: IT (occurrence: IT)
  Receive Date: 20221125
  Receipt Date: 20221125
  Transmission Date: 20230113
  Serious: Yes (Other)
  Sender: FDA-Public Use
  Company Number: None

PATIENT
  Age: 70 Year
  Sex: Male
  Weight: 71 kg

DRUGS (1)
  1. GEMCITABINE HYDROCHLORIDE [Suspect]
     Active Substance: GEMCITABINE HYDROCHLORIDE
     Indication: Lung neoplasm malignant
     Dosage: UNK, UNKNOWN
     Route: 042
     Dates: start: 20220511, end: 20221031

REACTIONS (9)
  - Weight decreased [Recovering/Resolving]
  - Pain [Recovering/Resolving]
  - Skin wound [Recovering/Resolving]
  - Paraesthesia [Recovering/Resolving]
  - Trichorrhexis [Recovering/Resolving]
  - Petechiae [Recovering/Resolving]
  - Peripheral swelling [Recovering/Resolving]
  - Diarrhoea [Recovered/Resolved]
  - Asthenia [Recovering/Resolving]

NARRATIVE: CASE EVENT DATE: 20220511
